FAERS Safety Report 4399786-4 (Version None)
Quarter: 2004Q3

REPORT INFORMATION
  Report Type: 
  Country: None (occurrence: None)
  Receive Date: 20040716
  Receipt Date: 20040614
  Transmission Date: 20050211
  Serious: Yes (Hospitalization, Other)
  Sender: FDA-Public Use
  Company Number: US-BRISTOL-MYERS SQUIBB COMPANY-12613295

PATIENT
  Age: 47 Year
  Sex: Female
  Weight: 91 kg

DRUGS (8)
  1. STAVUDINE XR [Suspect]
     Indication: HIV INFECTION
     Dosage: THERAPY HELD ON 07-MAY-2004
     Route: 048
     Dates: start: 20031007
  2. KALETRA [Suspect]
     Indication: HIV INFECTION
     Dosage: THERAPY HELD ON 07-MAY-2004
     Route: 048
     Dates: start: 20031007
  3. EMTRIVA [Suspect]
     Indication: HIV INFECTION
     Dosage: THERAPY HELD ON 07-MAY-2004
     Route: 048
     Dates: start: 20031007
  4. SULFAMETHOXAZOLE + TRIMETHOPRIM [Concomitant]
  5. RANITIDINE [Concomitant]
  6. THEO-DUR [Concomitant]
  7. ALBUTEROL [Concomitant]
  8. FLOVENT [Concomitant]

REACTIONS (7)
  - BLOOD POTASSIUM DECREASED [None]
  - DEHYDRATION [None]
  - HYPERLACTACIDAEMIA [None]
  - HYPERTHYROIDISM [None]
  - HYPOKALAEMIA [None]
  - MYALGIA [None]
  - NAUSEA [None]
